FAERS Safety Report 8076039-4 (Version None)
Quarter: 2012Q1

REPORT INFORMATION
  Report Type: 
  Country: None (occurrence: None)
  Receive Date: 20120127
  Receipt Date: 20110523
  Transmission Date: 20120608
  Serious: No
  Sender: FDA-Public Use
  Company Number: US-GLAXOSMITHKLINE-A0929597A

PATIENT
  Sex: Male

DRUGS (1)
  1. WELLBUTRIN [Suspect]
     Route: 065

REACTIONS (4)
  - MALAISE [None]
  - ODYNOPHAGIA [None]
  - OROPHARYNGEAL PAIN [None]
  - HEADACHE [None]
